FAERS Safety Report 11821930 (Version 2)
Quarter: 2016Q1

REPORT INFORMATION
  Report Type: Spontaneous
  Country: US (occurrence: US)
  Receive Date: 20151210
  Receipt Date: 20160202
  Transmission Date: 20160525
  Serious: No
  Sender: FDA-Public Use
  Company Number: US-JNJFOC-20150618720

PATIENT
  Sex: Male

DRUGS (4)
  1. LIPITOR [Concomitant]
     Active Substance: ATORVASTATIN CALCIUM
  2. SERTRALINE [Concomitant]
     Active Substance: SERTRALINE HYDROCHLORIDE
  3. IMBRUVICA [Suspect]
     Active Substance: IBRUTINIB
     Indication: LYMPHOMA
     Route: 048
     Dates: start: 20150205
  4. LISINOPRIL. [Concomitant]
     Active Substance: LISINOPRIL

REACTIONS (8)
  - Chest pain [Unknown]
  - Respiratory disorder [Unknown]
  - Dyspnoea [Unknown]
  - Abdominal discomfort [Unknown]
  - Heart rate increased [Unknown]
  - Drug dose omission [Recovered/Resolved]
  - Off label use [Unknown]
  - Asthenia [Unknown]

NARRATIVE: CASE EVENT DATE: 2015
